FAERS Safety Report 10157425 (Version 2)
Quarter: 2014Q2

REPORT INFORMATION
  Report Type: Spontaneous
  Country: US (occurrence: US)
  Receive Date: 20140507
  Receipt Date: 20140609
  Transmission Date: 20141212
  Serious: Yes (Other)
  Sender: FDA-Public Use
  Company Number: US-PFIZER INC-2014122264

PATIENT
  Age: 54 Year
  Sex: Female
  Weight: 104.31 kg

DRUGS (1)
  1. REVATIO [Suspect]
     Indication: CARDIAC DISORDER
     Dosage: 20 MG, 4X/DAY
     Dates: start: 2010, end: 2013

REACTIONS (1)
  - Cardiac valve disease [Unknown]
